FAERS Safety Report 13567994 (Version 4)
Quarter: 2017Q3

REPORT INFORMATION
  Report Type: Spontaneous
  Country: JP (occurrence: JP)
  Receive Date: 20170522
  Receipt Date: 20170711
  Transmission Date: 20171127
  Serious: Yes (Other)
  Sender: FDA-Public Use
  Company Number: JP-GLAXOSMITHKLINE-JP2017JPN073426

PATIENT
  Age: 40 Year
  Sex: Female
  Weight: 48 kg

DRUGS (5)
  1. EURODIN TABLET (JAPAN) [Concomitant]
     Active Substance: ESTAZOLAM
     Indication: BIPOLAR DISORDER
     Dosage: 2 MG, 1D
  2. CYMBALTA [Concomitant]
     Active Substance: DULOXETINE HYDROCHLORIDE
     Indication: BIPOLAR DISORDER
     Dosage: 60 MG, QOD
  3. LIMAS [Concomitant]
     Active Substance: LITHIUM CARBONATE
     Indication: BIPOLAR DISORDER
     Dosage: 200 MG, BID
  4. HALCION [Concomitant]
     Active Substance: TRIAZOLAM
     Indication: BIPOLAR DISORDER
     Dosage: UNK
  5. LAMICTAL [Suspect]
     Active Substance: LAMOTRIGINE
     Indication: BIPOLAR II DISORDER
     Dosage: 25 MG, QD
     Route: 048
     Dates: start: 20170315, end: 20170419

REACTIONS (11)
  - Rash macular [Recovering/Resolving]
  - Pyrexia [Recovering/Resolving]
  - Decreased appetite [Unknown]
  - Pigmentation disorder [Recovering/Resolving]
  - Toxic skin eruption [Recovering/Resolving]
  - Rash generalised [Recovering/Resolving]
  - Drug eruption [Recovering/Resolving]
  - Parotid gland enlargement [Recovering/Resolving]
  - Erythema multiforme [Recovering/Resolving]
  - Pruritus [Recovering/Resolving]
  - Generalised erythema [Recovering/Resolving]

NARRATIVE: CASE EVENT DATE: 2017
